FAERS Safety Report 8379655-5 (Version None)
Quarter: 2012Q1

REPORT INFORMATION
  Report Type: 
  Country: None (occurrence: None)
  Receive Date: 20120323
  Receipt Date: 20110322
  Transmission Date: 20120608
  Serious: Yes (Hospitalization)
  Sender: FDA-Public Use
  Company Number: 163-21880-11032673

PATIENT
  Age: 71 Year
  Sex: Male

DRUGS (12)
  1. FLUDROCORT (FLUDROCORTISONE) [Concomitant]
  2. REVLIMID [Suspect]
     Indication: MULTIPLE MYELOMA
     Dosage: 25 MG, 1 IN 1 D, PO ; 5 MG, DAILY X 21 DAYS, PO
     Route: 048
     Dates: start: 20070301
  3. REVLIMID [Suspect]
     Indication: MULTIPLE MYELOMA
     Dosage: 25 MG, 1 IN 1 D, PO ; 5 MG, DAILY X 21 DAYS, PO
     Route: 048
     Dates: start: 20100801
  4. HYROCORTISONE (HYDROCORTISONE) [Concomitant]
  5. ASPIRIN [Concomitant]
  6. ACYCLOVIR [Concomitant]
  7. FISH OIL (FISH OIL) [Concomitant]
  8. DECADRON [Concomitant]
  9. ACIDOPHILIS (LACTOBACILLUS ACIDOPHILUS) [Concomitant]
  10. NEPHROCAPS (NEPHROCAPS) [Concomitant]
  11. SYNTHROID [Concomitant]
  12. NEXIUM [Concomitant]

REACTIONS (1)
  - INFECTION [None]
